FAERS Safety Report 13029180 (Version 1)
Quarter: 2016Q4

REPORT INFORMATION
  Report Type: Spontaneous
  Country: US (occurrence: US)
  Receive Date: 20161214
  Receipt Date: 20161214
  Transmission Date: 20170207
  Serious: Yes (Life-Threatening, Hospitalization)
  Sender: FDA-Public Use
  Company Number: None

PATIENT
  Age: 48 Year
  Sex: Female
  Weight: 106.2 kg

DRUGS (1)
  1. ACTOS [Suspect]
     Active Substance: PIOGLITAZONE HYDROCHLORIDE
     Indication: DIABETES MELLITUS
     Dates: start: 20160928, end: 20161119

REACTIONS (4)
  - Pulmonary oedema [None]
  - Dyspnoea [None]
  - Chest pain [None]
  - Cardiac failure congestive [None]

NARRATIVE: CASE EVENT DATE: 20161120
